FAERS Safety Report 5595907-6 (Version None)
Quarter: 2008Q1

REPORT INFORMATION
  Report Type: 
  Country: None (occurrence: None)
  Receive Date: 20080118
  Receipt Date: 20080116
  Transmission Date: 20080703
  Serious: Yes (Hospitalization)
  Sender: FDA-Public Use
  Company Number: FR-ASTRAZENECA-2008CG00097

PATIENT
  Age: 59 Year
  Sex: Female

DRUGS (4)
  1. ARIMIDEX [Suspect]
     Indication: BREAST CANCER FEMALE
     Route: 048
     Dates: start: 20070801, end: 20071128
  2. ARIMIDEX [Suspect]
     Route: 048
     Dates: start: 20071218
  3. COVERSYL [Concomitant]
     Route: 048
  4. ENDOTELON [Concomitant]

REACTIONS (1)
  - LUNG DISORDER [None]
